FAERS Safety Report 16334531 (Version 1)
Quarter: 2019Q2

REPORT INFORMATION
  Report Type: Report from Study
  Country: US (occurrence: US)
  Receive Date: 20190520
  Receipt Date: 20190520
  Transmission Date: 20190711
  Serious: Yes (Death)
  Sender: FDA-Public Use
  Company Number: US-PFIZER INC-2019183822

PATIENT
  Age: 53 Year
  Sex: Female

DRUGS (1)
  1. IBRANCE [Suspect]
     Active Substance: PALBOCICLIB
     Indication: BREAST CANCER FEMALE
     Dosage: 75 MG, CYCLIC (21 DAYS, THEN 7 DAYS OFF)
     Route: 048
     Dates: start: 20190320

REACTIONS (2)
  - Abdominal distension [Unknown]
  - Death [Fatal]

NARRATIVE: CASE EVENT DATE: 2019
